FAERS Safety Report 12856050 (Version 1)
Quarter: 2016Q4

REPORT INFORMATION
  Report Type: Spontaneous
  Country: GB (occurrence: GB)
  Receive Date: 20161018
  Receipt Date: 20161018
  Transmission Date: 20170207
  Serious: Yes (Hospitalization)
  Sender: FDA-Public Use
  Company Number: GB-ALVOGEN-2016-ALVOGEN-029372

PATIENT
  Age: 62 Year
  Sex: Male

DRUGS (1)
  1. CLINDAMYCIN. [Suspect]
     Active Substance: CLINDAMYCIN
     Indication: OSTEOMYELITIS
     Route: 042
     Dates: start: 20160828, end: 20160921

REACTIONS (1)
  - International normalised ratio increased [Recovered/Resolved]
